FAERS Safety Report 12778906 (Version 1)
Quarter: 2016Q3

REPORT INFORMATION
  Report Type: Spontaneous
  Country: US (occurrence: US)
  Receive Date: 20160926
  Receipt Date: 20160926
  Transmission Date: 20161109
  Serious: No
  Sender: FDA-Public Use
  Company Number: US-JAZZ-2016-US-011140

PATIENT
  Age: 69 Year
  Sex: Female

DRUGS (38)
  1. FUROSEMIDE. [Concomitant]
     Active Substance: FUROSEMIDE
  2. LIPITOR [Concomitant]
     Active Substance: ATORVASTATIN CALCIUM
  3. METOPROLOL. [Concomitant]
     Active Substance: METOPROLOL
  4. SUDAFED 12 HOUR [Concomitant]
     Active Substance: PSEUDOEPHEDRINE HYDROCHLORIDE
  5. XYREM [Suspect]
     Active Substance: SODIUM OXYBATE
     Indication: NARCOLEPSY
     Dosage: 2.25 G, BID
     Route: 048
     Dates: start: 20160607
  6. SALINE [Concomitant]
     Active Substance: SODIUM CHLORIDE
     Indication: HYPERSENSITIVITY
  7. METOPROLOL SUCCINATE. [Concomitant]
     Active Substance: METOPROLOL SUCCINATE
     Indication: ILL-DEFINED DISORDER
  8. FERROUS FUMARATE [Concomitant]
     Active Substance: FERROUS FUMARATE
  9. L-TYROSINE [Concomitant]
  10. TOPAMAX [Concomitant]
     Active Substance: TOPIRAMATE
     Indication: MIGRAINE PROPHYLAXIS
  11. ALLEGRA ALLERGY [Concomitant]
     Active Substance: FEXOFENADINE HYDROCHLORIDE
     Indication: HYPERSENSITIVITY
  12. LASIX [Concomitant]
     Active Substance: FUROSEMIDE
     Indication: HYPERTENSION
  13. CALCIUM +D [Concomitant]
     Active Substance: CALCIUM\VITAMIN D
  14. LYSINE [Concomitant]
     Active Substance: LYSINE
  15. MAGNESIUM OXIDE. [Concomitant]
     Active Substance: MAGNESIUM OXIDE
  16. IRON [Concomitant]
     Active Substance: IRON
  17. B COMPLEX WITH VITAMIN C [Concomitant]
  18. ZYRTEC [Concomitant]
     Active Substance: CETIRIZINE HYDROCHLORIDE
  19. LASIX [Concomitant]
     Active Substance: FUROSEMIDE
     Indication: PERIPHERAL SWELLING
  20. LOSARTAN POTASSIUM/HCTZ [Concomitant]
     Indication: HYPERTENSION
  21. POTASSIUM CHLORIDE. [Concomitant]
     Active Substance: POTASSIUM CHLORIDE
  22. ALPHA LIPOIC ACID [Concomitant]
     Active Substance: .ALPHA.-LIPOIC ACID
  23. BENADRYL ALLERGY [Concomitant]
     Active Substance: DIPHENHYDRAMINE HYDROCHLORIDE
  24. CLARITIN [Concomitant]
     Active Substance: LORATADINE
  25. L-CARNITINE [Concomitant]
     Active Substance: LEVOCARNITINE
  26. MULTIVITAMINS [Concomitant]
     Active Substance: VITAMINS
  27. ASA [Concomitant]
     Active Substance: ASPIRIN
  28. PRAMIPEXOLE DIHCL [Concomitant]
     Active Substance: PRAMIPEXOLE DIHYDROCHLORIDE
     Indication: RESTLESS LEGS SYNDROME
  29. ATORVASTATIN [Concomitant]
     Active Substance: ATORVASTATIN
  30. ASPIRIN. [Concomitant]
     Active Substance: ASPIRIN
  31. MELATONIN [Concomitant]
     Active Substance: MELATONIN
  32. MODAFINIL. [Concomitant]
     Active Substance: MODAFINIL
  33. PANTOPRAZOLE SODIUM. [Concomitant]
     Active Substance: PANTOPRAZOLE SODIUM
  34. GABAPENTIN. [Concomitant]
     Active Substance: GABAPENTIN
  35. GUAIFENESIN. [Concomitant]
     Active Substance: GUAIFENESIN
  36. OMEPRAZOLE. [Concomitant]
     Active Substance: OMEPRAZOLE
  37. TYLENOL [Concomitant]
     Active Substance: ACETAMINOPHEN
  38. ZALEPLON. [Concomitant]
     Active Substance: ZALEPLON

REACTIONS (3)
  - Peripheral swelling [Not Recovered/Not Resolved]
  - Condition aggravated [Not Recovered/Not Resolved]
  - Hangover [Recovered/Resolved]

NARRATIVE: CASE EVENT DATE: 201606
